FAERS Safety Report 9255152 (Version 1)
Quarter: 2013Q2

REPORT INFORMATION
  Report Type: Spontaneous
  Country: US (occurrence: US)
  Receive Date: 20130425
  Receipt Date: 20130425
  Transmission Date: 20140414
  Serious: No
  Sender: FDA-Public Use
  Company Number: US-BAYER-2013-052329

PATIENT
  Age: 3 Year
  Sex: Female
  Weight: 28 kg

DRUGS (2)
  1. ALEVE CAPLET [Suspect]
     Dosage: 1 DF, ONCE
     Route: 048
     Dates: start: 20130419, end: 20130419
  2. TYLENOL [PARACETAMOL] [Concomitant]

REACTIONS (2)
  - Accidental exposure to product by child [None]
  - Failure of child resistant mechanism for pharmaceutical product [None]
